FAERS Safety Report 10714825 (Version 1)
Quarter: 2015Q1

REPORT INFORMATION
  Report Type: Spontaneous
  Country: US (occurrence: US)
  Receive Date: 20150115
  Receipt Date: 20150115
  Transmission Date: 20150721
  Serious: Yes (Death, Other)
  Sender: FDA-Public Use
  Company Number: US-GLAXOSMITHKLINE-US2015GSK003225

PATIENT
  Age: 39 Year
  Sex: Female

DRUGS (7)
  1. CLONAZEPAM. [Suspect]
     Active Substance: CLONAZEPAM
     Route: 048
  2. LAMOTRIGINE. [Suspect]
     Active Substance: LAMOTRIGINE
     Route: 048
  3. DULOXETINE [Suspect]
     Active Substance: DULOXETINE
     Route: 048
  4. LITHIUM [Suspect]
     Active Substance: LITHIUM CARBONATE
     Route: 048
  5. RISPERIDONE. [Suspect]
     Active Substance: RISPERIDONE
     Route: 048
  6. ZIPRASIDONE [Suspect]
     Active Substance: ZIPRASIDONE
     Route: 048
  7. MEDROXYPROGESTERONE [Suspect]
     Active Substance: MEDROXYPROGESTERONE
     Route: 048

REACTIONS (1)
  - Completed suicide [Fatal]
